FAERS Safety Report 17946187 (Version 1)
Quarter: 2020Q2

REPORT INFORMATION
  Report Type: Spontaneous
  Country: US (occurrence: US)
  Receive Date: 20200626
  Receipt Date: 20200626
  Transmission Date: 20200714
  Serious: Yes (Other)
  Sender: FDA-Public Use
  Company Number: US-EMCURE PHARMACEUTICALS LTD-2019-EPL-002192

PATIENT
  Sex: Female

DRUGS (7)
  1. 6-MERCAPTOPURINE [Suspect]
     Active Substance: MERCAPTOPURINE
     Dosage: 12 MG/M2/DAY ON DAY 316
     Route: 048
  2. 6-MERCAPTOPURINE [Suspect]
     Active Substance: MERCAPTOPURINE
     Dosage: 20 MG/M2/DAY FROM DAY DAY 392
     Route: 048
  3. DEXAMETHASONE. [Suspect]
     Active Substance: DEXAMETHASONE
     Indication: B PRECURSOR TYPE ACUTE LEUKAEMIA
     Dosage: UNK
     Route: 048
  4. METHOTREXATE. [Concomitant]
     Active Substance: METHOTREXATE
     Indication: B PRECURSOR TYPE ACUTE LEUKAEMIA
     Dosage: 2.8571 MG/M2 DAILY;
     Route: 048
  5. 6-MERCAPTOPURINE [Suspect]
     Active Substance: MERCAPTOPURINE
     Indication: B PRECURSOR TYPE ACUTE LEUKAEMIA
     Dosage: 75 MG/M2 DAILY;
     Route: 048
  6. METHOTREXATE. [Concomitant]
     Active Substance: METHOTREXATE
     Dosage: 17 MG/M2/WEEK FROM DAY 392
  7. METHOTREXATE. [Concomitant]
     Active Substance: METHOTREXATE
     Dosage: 11 MG/M2/DAY ON DAY 316 OF MAINTENANCE
     Route: 048

REACTIONS (1)
  - Hyperglycaemia [Recovered/Resolved]
